FAERS Safety Report 8419662-7 (Version None)
Quarter: 2012Q2

REPORT INFORMATION
  Report Type: 
  Country: None (occurrence: None)
  Receive Date: 20120604
  Receipt Date: 20120604
  Transmission Date: 20120825
  Serious: Yes (Other)
  Sender: FDA-Public Use
  Company Number: None

PATIENT
  Age: 22 Year
  Sex: Female
  Weight: 84.369 kg

DRUGS (1)
  1. MIRENA [Suspect]
     Indication: CONTRACEPTION
     Dosage: 1IUD 5 YEARS INTRA-UTERINE
     Route: 015
     Dates: start: 20090301, end: 20120601

REACTIONS (10)
  - UNEVALUABLE EVENT [None]
  - OVARIAN CYST [None]
  - SUICIDAL IDEATION [None]
  - MENORRHAGIA [None]
  - URINARY TRACT INFECTION [None]
  - KIDNEY INFECTION [None]
  - WEIGHT INCREASED [None]
  - DEPRESSION [None]
  - FEELING ABNORMAL [None]
  - MALAISE [None]
